FAERS Safety Report 17352171 (Version 1)
Quarter: 2020Q1

REPORT INFORMATION
  Report Type: Report from Study
  Country: CA (occurrence: CA)
  Receive Date: 20200130
  Receipt Date: 20200130
  Transmission Date: 20200409
  Serious: Yes (Death)
  Sender: FDA-Public Use
  Company Number: CA-TAKEDA-2020TUS005890

PATIENT
  Age: 63 Year
  Sex: Male

DRUGS (7)
  1. PENTASA [Concomitant]
     Active Substance: MESALAMINE
     Dosage: 1 GRAM, TID
  2. GABAPENTIN. [Concomitant]
     Active Substance: GABAPENTIN
     Dosage: 100 MILLIGRAM, BID
  3. SIMVASTATIN. [Concomitant]
     Active Substance: SIMVASTATIN
     Dosage: 10 MILLIGRAM, QD
  4. BETOPTIC S [Concomitant]
     Active Substance: BETAXOLOL HYDROCHLORIDE
     Dosage: UNK UNK, BID
  5. VEDOLIZUMAB [Suspect]
     Active Substance: VEDOLIZUMAB
     Indication: COLITIS ULCERATIVE
     Dosage: 300 MILLIGRAM
     Route: 042
     Dates: start: 20161108, end: 20191119
  6. MELOXICAM. [Concomitant]
     Active Substance: MELOXICAM
     Dosage: 7.5 MILLIGRAM, BID
  7. SERTRALINE [Concomitant]
     Active Substance: SERTRALINE HYDROCHLORIDE
     Dosage: 25 MILLIGRAM, TID

REACTIONS (1)
  - Death [Fatal]

NARRATIVE: CASE EVENT DATE: 202001
